FAERS Safety Report 7287952-X (Version None)
Quarter: 2011Q1

REPORT INFORMATION
  Report Type: 
  Country: None (occurrence: None)
  Receive Date: 20110211
  Receipt Date: 20110208
  Transmission Date: 20110831
  Serious: Yes (Other)
  Sender: FDA-Public Use
  Company Number: US-PFIZER INC-2011028496

PATIENT
  Sex: Female
  Weight: 129.25 kg

DRUGS (5)
  1. BENAZEPRIL [Concomitant]
     Dosage: 5 MG, 1X/DAY
  2. AMBIEN [Concomitant]
     Dosage: 10 MG, 1X/DAY
  3. PRISTIQ [Suspect]
     Indication: DEPRESSION
     Dosage: 50 MG, 1X/DAY
     Route: 048
     Dates: start: 20101101
  4. BUTALBITAL AND CAFFEINE AND PARACETAMOL [Concomitant]
     Dosage: UNK
  5. XANAX [Concomitant]
     Dosage: 1 MG, 2X/DAY

REACTIONS (1)
  - HEADACHE [None]
